FAERS Safety Report 7701307-2 (Version None)
Quarter: 2011Q3

REPORT INFORMATION
  Report Type: 
  Country: None (occurrence: None)
  Receive Date: 20110822
  Receipt Date: 20110810
  Transmission Date: 20111222
  Serious: Yes (Hospitalization)
  Sender: FDA-Public Use
  Company Number: CA-JNJFOC-20110806191

PATIENT
  Sex: Male
  Weight: 80.5 kg

DRUGS (11)
  1. REMICADE [Suspect]
     Route: 042
     Dates: start: 20110124
  2. REMICADE [Suspect]
     Indication: CROHN'S DISEASE
     Route: 042
     Dates: start: 20110110
  3. REMICADE [Suspect]
     Route: 042
     Dates: start: 20110718
  4. EFFEXOR [Concomitant]
     Indication: DEPRESSION
  5. REMICADE [Suspect]
     Route: 042
     Dates: start: 20110810
  6. REMICADE [Suspect]
     Route: 042
     Dates: start: 20110221
  7. REMICADE [Suspect]
     Route: 042
     Dates: start: 20110420
  8. METHADONE HYDROCHLORIDE [Concomitant]
     Indication: PAIN MANAGEMENT
     Route: 048
  9. IMURAN [Concomitant]
     Indication: PRODUCT USED FOR UNKNOWN INDICATION
     Route: 048
  10. REMICADE [Suspect]
     Route: 042
     Dates: start: 20110615
  11. NORTRIPTYLINE HCL [Concomitant]
     Indication: PRODUCT USED FOR UNKNOWN INDICATION
     Dosage: 1 TAB ORALLY AT HOUR OF SLEEP AS NEEDED
     Route: 048

REACTIONS (4)
  - ABDOMINAL PAIN [None]
  - RASH [None]
  - INFUSION RELATED REACTION [None]
  - NEPHROLITHIASIS [None]
